FAERS Safety Report 23713192 (Version 1)
Quarter: 2024Q2

REPORT INFORMATION
  Report Type: Spontaneous
  Country: ZA (occurrence: None)
  Receive Date: 20240405
  Receipt Date: 20240405
  Transmission Date: 20240716
  Serious: Yes (Death)
  Sender: FDA-Public Use
  Company Number: 2024A081713

PATIENT
  Age: 70 Year
  Sex: Male

DRUGS (7)
  1. BUDESONIDE\FORMOTEROL [Suspect]
     Active Substance: BUDESONIDE\FORMOTEROL
     Indication: Asthma
     Dosage: 320 UG, FREQUENCY UNKNOWN UNKNOWN
     Route: 055
  2. URISPAS [Concomitant]
     Active Substance: FLAVOXATE HYDROCHLORIDE
     Indication: Hypertonic bladder
     Dosage: 200.0MG UNKNOWN
     Route: 048
  3. UROMAX [Concomitant]
     Indication: Prostate examination abnormal
     Dosage: 0.4MG UNKNOWN
     Route: 048
  4. THEOPHYLLINE ANHYDROUS [Concomitant]
     Active Substance: THEOPHYLLINE ANHYDROUS
     Indication: Asthma
     Dosage: 250.0MG UNKNOWN
     Route: 048
  5. NEUMOTROPIO [Concomitant]
     Indication: Emphysema
     Dosage: 10.0UG UNKNOWN
     Route: 048
  6. FENOTEROL HYDROBROMIDE\IPRATROPIUM BROMIDE [Concomitant]
     Active Substance: FENOTEROL HYDROBROMIDE\IPRATROPIUM BROMIDE
     Indication: Asthma
     Dosage: 200.0DF UNKNOWN
  7. LEVALBUTEROL HYDROCHLORIDE [Concomitant]
     Active Substance: LEVALBUTEROL HYDROCHLORIDE
     Indication: Asthma

REACTIONS (1)
  - Death [Fatal]

NARRATIVE: CASE EVENT DATE: 20240323
